FAERS Safety Report 9128224 (Version 3)
Quarter: 2015Q2

REPORT INFORMATION
  Report Type: Spontaneous
  Country: US (occurrence: US)
  Receive Date: 20130228
  Receipt Date: 20150604
  Transmission Date: 20150821
  Serious: Yes (Life-Threatening, Hospitalization, Other)
  Sender: FDA-Public Use
  Company Number: US-ELI_LILLY_AND_COMPANY-US201302005083

PATIENT
  Sex: Male

DRUGS (14)
  1. TRAMADOL [Concomitant]
     Active Substance: TRAMADOL
     Dosage: UNK, UNKNOWN
     Route: 065
  2. DULOXETINE HYDROCHLORIDE. [Suspect]
     Active Substance: DULOXETINE HYDROCHLORIDE
     Dosage: 90 MG, UNKNOWN
  3. DIOVAN [Concomitant]
     Active Substance: VALSARTAN
     Indication: BLOOD PRESSURE
  4. NAPROXEN. [Concomitant]
     Active Substance: NAPROXEN
     Indication: PAIN
  5. ZOLPIDEM [Concomitant]
     Active Substance: ZOLPIDEM\ZOLPIDEM TARTRATE
     Dosage: UNK, UNKNOWN
     Route: 065
  6. TIZANIDINE (TIZANIDINE) [Concomitant]
     Active Substance: TIZANIDINE
     Dosage: UNK, UNKNOWN
     Route: 065
  7. DULOXETINE HYDROCHLORIDE. [Suspect]
     Active Substance: DULOXETINE HYDROCHLORIDE
     Indication: DEPRESSION
     Dosage: 60 MG, UNKNOWN
  8. OPANA [Concomitant]
     Active Substance: OXYMORPHONE HYDROCHLORIDE
     Dosage: UNK, UNKNOWN
     Route: 065
  9. LORTAB                             /00917501/ [Concomitant]
     Active Substance: LORATADINE
     Dosage: UNK, UNKNOWN
     Route: 065
  10. DULOXETINE HYDROCHLORIDE. [Suspect]
     Active Substance: DULOXETINE HYDROCHLORIDE
     Indication: FIBROMYALGIA
     Dosage: 30 MG, UNKNOWN
     Dates: start: 2009
  11. HYDROCODONE [Concomitant]
     Active Substance: HYDROCODONE
     Indication: PAIN
  12. METFORMIN [Concomitant]
     Active Substance: METFORMIN HYDROCHLORIDE
     Dosage: UNK, UNKNOWN
     Route: 065
  13. ASPIRIN                            /00002701/ [Concomitant]
     Active Substance: ASPIRIN
     Dosage: UNK, UNKNOWN
     Route: 065
  14. NUPRIN [Concomitant]
     Active Substance: IBUPROFEN
     Dosage: UNK, UNKNOWN
     Route: 065

REACTIONS (23)
  - Loss of consciousness [Unknown]
  - Depression [Unknown]
  - Insomnia [Unknown]
  - Panic attack [Unknown]
  - Amnesia [Unknown]
  - Arthralgia [Unknown]
  - Pruritus [Unknown]
  - Drug ineffective [Unknown]
  - VIIth nerve paralysis [Recovered/Resolved]
  - Paraesthesia [Unknown]
  - Eye disorder [Recovered/Resolved]
  - Self-injurious ideation [Recovered/Resolved]
  - Atrial fibrillation [Unknown]
  - Loss of consciousness [Not Recovered/Not Resolved]
  - Hypoaesthesia [Unknown]
  - Depression [Not Recovered/Not Resolved]
  - Myalgia [Unknown]
  - Drug withdrawal syndrome [Recovered/Resolved]
  - Headache [Not Recovered/Not Resolved]
  - Bradyphrenia [Recovered/Resolved]
  - Feeling abnormal [Recovered/Resolved]
  - Paraesthesia [Recovered/Resolved]
  - Dizziness [Recovered/Resolved]
